FAERS Safety Report 7355456-1 (Version None)
Quarter: 2011Q1

REPORT INFORMATION
  Report Type: 
  Country: None (occurrence: None)
  Receive Date: 20110316
  Receipt Date: 20110307
  Transmission Date: 20110831
  Serious: Yes (Death, Hospitalization)
  Sender: FDA-Public Use
  Company Number: US-ELI_LILLY_AND_COMPANY-US201012005110

PATIENT
  Sex: Female
  Weight: 58.957 kg

DRUGS (3)
  1. GEMZAR [Suspect]
     Dosage: 800 MG, UNK
     Route: 042
     Dates: end: 20101115
  2. GEMZAR [Suspect]
     Indication: OVARIAN CANCER
     Dosage: 1600 MG, UNK
     Route: 042
     Dates: start: 20100827, end: 20101115
  3. CARBOPLATIN [Concomitant]
     Indication: OVARIAN CANCER
     Dosage: 430 MG, UNK
     Dates: start: 20100827

REACTIONS (3)
  - CHOLECYSTITIS [None]
  - SEPSIS [None]
  - ACUTE HEPATIC FAILURE [None]
